FAERS Safety Report 8143664-1 (Version None)
Quarter: 2012Q1

REPORT INFORMATION
  Report Type: 
  Country: None (occurrence: None)
  Receive Date: 20120103
  Receipt Date: 20110920
  Transmission Date: 20120608
  Serious: No
  Sender: FDA-Public Use
  Company Number: AE-2011-001697

PATIENT
  Age: 54 Year
  Sex: Female
  Weight: 81.6475 kg

DRUGS (5)
  1. VITAMIN E [Concomitant]
  2. RIBAPAK (RIBAVIRIN) [Concomitant]
  3. INCIVEK [Suspect]
     Dosage: 2250 MG (750 MG, 1 IN 8 HR) ORAL
     Dates: start: 20110819
  4. VITAMIN D [Concomitant]
  5. PEGASYS [Concomitant]

REACTIONS (4)
  - ANAEMIA [None]
  - HYPOAESTHESIA [None]
  - NAUSEA [None]
  - FATIGUE [None]
